FAERS Safety Report 9740480 (Version 2)
Quarter: 2013Q4

REPORT INFORMATION
  Report Type: Spontaneous
  Country: US (occurrence: US)
  Receive Date: 20131209
  Receipt Date: 20131218
  Transmission Date: 20140711
  Serious: No
  Sender: FDA-Public Use
  Company Number: US-BIOGENIDEC-2013BI094312

PATIENT
  Age: 47 Year
  Sex: Male

DRUGS (1)
  1. TECFIDERA [Suspect]
     Indication: RELAPSING-REMITTING MULTIPLE SCLEROSIS
     Route: 048
     Dates: start: 20130914, end: 20131030

REACTIONS (4)
  - Blood immunoglobulin G abnormal [Unknown]
  - Blood immunoglobulin M abnormal [Unknown]
  - Prescribed underdose [Unknown]
  - Fatigue [Recovered/Resolved]
